FAERS Safety Report 8918165 (Version 1)
Quarter: 2012Q4

REPORT INFORMATION
  Report Type: 
  Country: US (occurrence: US)
  Receive Date: 20121120
  Receipt Date: 20121120
  Transmission Date: 20130627
  Serious: Yes (Hospitalization)
  Sender: FDA-Public Use
  Company Number: US-CELGENEUS-163-21880-12110176

PATIENT
  Age: 74 None
  Sex: Male

DRUGS (1)
  1. REVLIMID [Suspect]
     Indication: MYELODYSPLASTIC SYNDROME
     Dosage: 2.5 Milligram
     Route: 048
     Dates: start: 201209

REACTIONS (4)
  - Blood glucose increased [Unknown]
  - Full blood count decreased [Unknown]
  - Abdominal pain upper [Unknown]
  - Lung infection [Unknown]
